FAERS Safety Report 10207959 (Version 1)
Quarter: 2014Q2

REPORT INFORMATION
  Report Type: Spontaneous
  Country: US (occurrence: US)
  Receive Date: 20140530
  Receipt Date: 20140530
  Transmission Date: 20141212
  Serious: No
  Sender: FDA-Public Use
  Company Number: US-GLAXOSMITHKLINE-A1066001A

PATIENT
  Age: 84 Year
  Sex: Female

DRUGS (2)
  1. VENTOLIN [Suspect]
     Indication: PRODUCT USED FOR UNKNOWN INDICATION
     Dosage: 90MCG UNKNOWN
     Route: 055
     Dates: start: 20110615
  2. FLOVENT [Suspect]
     Indication: PRODUCT USED FOR UNKNOWN INDICATION
     Dosage: 220MCG UNKNOWN
     Route: 055
     Dates: start: 20061211

REACTIONS (1)
  - Drug administration error [Not Recovered/Not Resolved]
